FAERS Safety Report 7977750-3 (Version None)
Quarter: 2011Q4

REPORT INFORMATION
  Report Type: 
  Country: None (occurrence: None)
  Receive Date: 20111214
  Receipt Date: 20111129
  Transmission Date: 20120403
  Serious: No
  Sender: FDA-Public Use
  Company Number: US-AMGEN-USASP2011063030

PATIENT
  Age: 58 Year
  Sex: Female

DRUGS (3)
  1. ENBREL [Suspect]
     Indication: PSORIATIC ARTHROPATHY
  2. ENBREL [Suspect]
     Indication: RHEUMATOID ARTHRITIS
     Dosage: 25 MG, UNK
     Dates: start: 20040330
  3. HUMIRA [Concomitant]
     Dosage: UNK

REACTIONS (4)
  - THERMOMETRY ABNORMAL [None]
  - INJECTION SITE ERYTHEMA [None]
  - ERYTHEMA [None]
  - HYPERTENSION [None]
